FAERS Safety Report 6998795-6 (Version None)
Quarter: 2010Q3

REPORT INFORMATION
  Report Type: 
  Country: None (occurrence: None)
  Receive Date: 20100920
  Receipt Date: 20100914
  Transmission Date: 20110219
  Serious: Yes (Hospitalization)
  Sender: FDA-Public Use
  Company Number: DE-SANOFI-AVENTIS-2009SA007921

PATIENT
  Age: 65 Year
  Sex: Female
  Weight: 76 kg

DRUGS (8)
  1. DOCETAXEL [Suspect]
     Indication: BREAST CANCER
     Route: 041
     Dates: start: 20090804, end: 20090804
  2. DOCETAXEL [Suspect]
     Route: 041
     Dates: start: 20091013, end: 20091013
  3. RED BLOOD CELLS [Concomitant]
     Route: 042
     Dates: start: 20091002, end: 20091014
  4. ACETYLSALICYLIC ACID [Concomitant]
     Indication: PROPHYLAXIS
     Route: 048
     Dates: start: 20091111
  5. DEXAMETHASONE [Concomitant]
     Indication: PREMEDICATION
     Route: 048
     Dates: start: 20090803, end: 20091013
  6. DEXAMETHASONE [Concomitant]
     Route: 042
     Dates: start: 20090804, end: 20091013
  7. CLEMASTINE FUMARATE [Concomitant]
     Indication: PREMEDICATION
     Route: 042
     Dates: start: 20090804, end: 20091013
  8. RANITIDINE [Concomitant]
     Route: 042
     Dates: start: 20090804, end: 20091013

REACTIONS (2)
  - BLINDNESS [None]
  - PAPILLOEDEMA [None]
